FAERS Safety Report 25541730 (Version 1)
Quarter: 2025Q3

REPORT INFORMATION
  Report Type: Report from Study
  Country: US (occurrence: US)
  Receive Date: 20250711
  Receipt Date: 20250711
  Transmission Date: 20251020
  Serious: Yes (Hospitalization, Other)
  Sender: DIFGEN PHARMACEUTICALS LLC
  Company Number: US-Difgen-012072

PATIENT

DRUGS (4)
  1. XYLAZINE [Suspect]
     Active Substance: XYLAZINE
     Indication: Product used for unknown indication
     Route: 065
  2. MEDETOMIDINE [Suspect]
     Active Substance: MEDETOMIDINE
     Indication: Product used for unknown indication
     Route: 065
  3. LIDOCAINE [Suspect]
     Active Substance: LIDOCAINE
     Indication: Product used for unknown indication
     Route: 065
  4. FENTANYL [Suspect]
     Active Substance: FENTANYL
     Indication: Product used for unknown indication
     Route: 065

REACTIONS (4)
  - Adulterated product [Recovered/Resolved]
  - Overdose [Recovered/Resolved]
  - Hypothermia [Recovered/Resolved]
  - Sinus bradycardia [Recovered/Resolved]
